FAERS Safety Report 13155545 (Version 1)
Quarter: 2017Q1

REPORT INFORMATION
  Report Type: Spontaneous
  Country: BR (occurrence: BR)
  Receive Date: 20170126
  Receipt Date: 20170126
  Transmission Date: 20170428
  Serious: Yes (Other)
  Sender: FDA-Public Use
  Company Number: BR-PFIZER INC-2017030747

PATIENT
  Age: 77 Year
  Sex: Female

DRUGS (3)
  1. FRONTAL [Suspect]
     Active Substance: ALPRAZOLAM
     Indication: INSOMNIA
     Dosage: UNK
  2. FRONTAL [Suspect]
     Active Substance: ALPRAZOLAM
     Indication: ANXIOLYTIC THERAPY
  3. FRONTAL [Suspect]
     Active Substance: ALPRAZOLAM
     Indication: NERVOUSNESS
     Dosage: UNK, 1X/DAY (AT NIGHT)

REACTIONS (5)
  - Anxiety [Unknown]
  - Dependence [Unknown]
  - Drug dose omission [Unknown]
  - Insomnia [Not Recovered/Not Resolved]
  - Urinary tract infection [Unknown]

NARRATIVE: CASE EVENT DATE: 201701
